FAERS Safety Report 12582437 (Version 1)
Quarter: 2016Q3

REPORT INFORMATION
  Report Type: Spontaneous
  Country: US (occurrence: None)
  Receive Date: 20160721
  Receipt Date: 20160721
  Transmission Date: 20161109
  Serious: No
  Sender: FDA-Public Use
  Company Number: None

PATIENT
  Age: 73 Year
  Sex: Male

DRUGS (6)
  1. NEURONTIN [Suspect]
     Active Substance: GABAPENTIN
     Indication: HYPOAESTHESIA
     Route: 048
     Dates: start: 20160531, end: 20160604
  2. CAL. + VIT. D [Concomitant]
  3. VITAMIN C [Concomitant]
     Active Substance: ASCORBIC ACID
  4. ALEVE [Concomitant]
     Active Substance: NAPROXEN SODIUM
  5. CALTRATE [Concomitant]
     Active Substance: CALCIUM CARBONATE
  6. CENTRUM [Concomitant]
     Active Substance: VITAMINS

REACTIONS (3)
  - Ageusia [None]
  - Hypoaesthesia [None]
  - Hyperhidrosis [None]

NARRATIVE: CASE EVENT DATE: 20160531
